FAERS Safety Report 12880305 (Version 1)
Quarter: 2016Q4

REPORT INFORMATION
  Report Type: Spontaneous
  Country: US (occurrence: US)
  Receive Date: 20161025
  Receipt Date: 20161025
  Transmission Date: 20170207
  Serious: No
  Sender: FDA-Public Use
  Company Number: None

PATIENT

DRUGS (1)
  1. ETOPOSIDE. [Suspect]
     Active Substance: ETOPOSIDE

REACTIONS (4)
  - Device connection issue [None]
  - Drug dose omission [None]
  - Accidental exposure to product [None]
  - Wrong technique in product usage process [None]
